FAERS Safety Report 12094909 (Version 3)
Quarter: 2016Q1

REPORT INFORMATION
  Report Type: Spontaneous
  Country: IT (occurrence: IT)
  Receive Date: 20160219
  Receipt Date: 20160303
  Transmission Date: 20160526
  Serious: Yes (Hospitalization, Other)
  Sender: FDA-Public Use
  Company Number: IT-PFIZER INC-2016093434

PATIENT
  Age: 83 Year
  Sex: Male

DRUGS (4)
  1. TARGIN [Suspect]
     Active Substance: NALOXONE HYDROCHLORIDE\OXYCODONE HYDROCHLORIDE
     Indication: PAIN
     Dosage: 2 DF, 1X/DAY
     Route: 048
     Dates: start: 20141130, end: 20150520
  2. GABAPENTIN TEVA [Suspect]
     Active Substance: GABAPENTIN
     Dosage: 400 MG, 3X/DAY
     Route: 048
  3. TARGIN [Suspect]
     Active Substance: NALOXONE HYDROCHLORIDE\OXYCODONE HYDROCHLORIDE
     Dosage: 20 MG, 2X/DAY
     Route: 048
  4. GABAPENTIN TEVA [Suspect]
     Active Substance: GABAPENTIN
     Indication: PAIN
     Dosage: 1200 MG, 1X/DAY
     Route: 048
     Dates: start: 20150501, end: 20150520

REACTIONS (11)
  - Sopor [Recovered/Resolved]
  - Hyperpyrexia [Recovered/Resolved]
  - Hypokinesia [Recovered/Resolved]
  - Bradyphrenia [Recovered/Resolved]
  - Toxicity to various agents [Recovered/Resolved]
  - Hypoxia [Recovered/Resolved]
  - Dysphonia [Recovered/Resolved]
  - Pain in extremity [Recovered/Resolved]
  - Ataxia [Recovered/Resolved]
  - Metabolic encephalopathy [Recovered/Resolved]
  - Nystagmus [Recovered/Resolved]

NARRATIVE: CASE EVENT DATE: 20150520
